FAERS Safety Report 5568788-4 (Version None)
Quarter: 2007Q4

REPORT INFORMATION
  Report Type: 
  Country: None (occurrence: None)
  Receive Date: 20071220
  Receipt Date: 20070119
  Transmission Date: 20080405
  Serious: No
  Sender: FDA-Public Use
  Company Number: A0635045A

PATIENT
  Age: 62 Year
  Sex: Male

DRUGS (10)
  1. AVODART [Suspect]
     Indication: DRUG USE FOR UNKNOWN INDICATION
     Route: 048
  2. AVANDIA [Suspect]
     Indication: DRUG USE FOR UNKNOWN INDICATION
     Route: 048
  3. LIPITOR [Suspect]
     Route: 048
  4. ATENOLOL [Suspect]
  5. POTASSIUM CHLORIDE [Suspect]
  6. FOSINOPRIL SODIUM [Suspect]
  7. GLUCOPHAGE [Suspect]
  8. GLIPIZIDE [Suspect]
  9. DOXAZOSIN MESYLATE [Suspect]
  10. FUROSEMIDE [Concomitant]

REACTIONS (1)
  - DIZZINESS [None]
